FAERS Safety Report 4375660-4 (Version None)
Quarter: 2004Q2

REPORT INFORMATION
  Report Type: 
  Country: None (occurrence: None)
  Receive Date: 20040610
  Receipt Date: 20040603
  Transmission Date: 20050107
  Serious: Yes (Hospitalization)
  Sender: FDA-Public Use
  Company Number: FR-GLAXOSMITHKLINE-B0334612A

PATIENT
  Age: 54 Year
  Sex: Female
  Weight: 79 kg

DRUGS (5)
  1. ZANTAC [Suspect]
     Indication: CONGENITAL HIATUS HERNIA
     Dosage: 200MG PER DAY
     Route: 048
     Dates: start: 20040326, end: 20040329
  2. LORAZEPAM [Concomitant]
     Indication: ANXIETY
     Dosage: 1MG PER DAY
     Route: 048
     Dates: start: 20040210
  3. STABLON [Concomitant]
     Indication: DEPRESSION
     Dosage: 37.5MG PER DAY
     Route: 048
     Dates: start: 20040210
  4. ROCGEL [Concomitant]
     Indication: CONGENITAL HIATUS HERNIA
     Dosage: 1.2MG THREE TIMES PER DAY
     Route: 048
     Dates: start: 20040326, end: 20040329
  5. GENERAL ANESTHESIA [Concomitant]
     Indication: ABDOMINAL EXPLORATION
     Route: 065

REACTIONS (2)
  - ARTHRALGIA [None]
  - VASCULAR PURPURA [None]
